FAERS Safety Report 6117960-3 (Version None)
Quarter: 2009Q1

REPORT INFORMATION
  Report Type: 
  Country: None (occurrence: None)
  Receive Date: 20090314
  Receipt Date: 20090203
  Transmission Date: 20090719
  Serious: No
  Sender: FDA-Public Use
  Company Number: US-ABBOTT-09P-163-0501604-00

PATIENT
  Sex: Male
  Weight: 81.266 kg

DRUGS (2)
  1. HUMIRA [Suspect]
     Indication: ANKYLOSING SPONDYLITIS
     Route: 058
     Dates: start: 20081101
  2. UNNAMED BLOOD PRESSURE MEDICATION [Concomitant]
     Indication: HYPERTENSION
     Dosage: NOT REPORTED

REACTIONS (3)
  - INJECTION SITE HAEMORRHAGE [None]
  - INJECTION SITE NODULE [None]
  - INJECTION SITE RASH [None]
